FAERS Safety Report 5474307-3 (Version None)
Quarter: 2007Q4

REPORT INFORMATION
  Report Type: 
  Country: None (occurrence: None)
  Receive Date: 20071002
  Receipt Date: 20070706
  Transmission Date: 20080405
  Serious: No
  Sender: FDA-Public Use
  Company Number: US-ASTRAZENECA-2007UW15899

PATIENT
  Age: 64 Year
  Sex: Female

DRUGS (3)
  1. ARIMIDEX [Suspect]
     Indication: BREAST CANCER STAGE II
     Route: 048
     Dates: start: 20060626
  2. ARIMIDEX [Suspect]
     Indication: MALIGNANT BREAST LUMP REMOVAL
     Route: 048
     Dates: start: 20060626
  3. FOSOMAX [Concomitant]

REACTIONS (6)
  - ALOPECIA [None]
  - CYST [None]
  - FATIGUE [None]
  - HEADACHE [None]
  - HOT FLUSH [None]
  - INSOMNIA [None]
